FAERS Safety Report 5356269-2 (Version None)
Quarter: 2007Q2

REPORT INFORMATION
  Report Type: 
  Country: None (occurrence: None)
  Receive Date: 20070530
  Receipt Date: 20061023
  Transmission Date: 20071010
  Serious: Yes (Hospitalization)
  Sender: FDA-Public Use
  Company Number: US200609004197

PATIENT
  Age: 30 Year
  Sex: Male
  Weight: 104.3 kg

DRUGS (2)
  1. ZYPREXA [Suspect]
     Dates: start: 20000101, end: 20040101
  2. QUETIAPINE FUMARATE [Concomitant]

REACTIONS (4)
  - BLOOD CHOLESTEROL ABNORMAL [None]
  - BLOOD TRIGLYCERIDES INCREASED [None]
  - DIABETES MELLITUS [None]
  - HYPERTENSION [None]
